FAERS Safety Report 13839364 (Version 3)
Quarter: 2017Q3

REPORT INFORMATION
  Report Type: Report from Study
  Country: US (occurrence: US)
  Receive Date: 20170807
  Receipt Date: 20170926
  Transmission Date: 20171127
  Serious: Yes (Hospitalization, Other)
  Sender: FDA-Public Use
  Company Number: US-BAYER-2017-138172

PATIENT
  Age: 65 Year
  Sex: Female

DRUGS (2)
  1. STIVARGA [Suspect]
     Active Substance: REGORAFENIB
     Indication: GASTROINTESTINAL STROMAL TUMOUR
     Dosage: 160 MG, QD, WITH FOOD FOR 21 DAYS ON AND 7 DAYS OFF AND REPEAT CYCLE AS DIRECTED
     Route: 048
     Dates: start: 20170629, end: 2017
  2. STIVARGA [Suspect]
     Active Substance: REGORAFENIB
     Indication: SOFT TISSUE SARCOMA
     Dosage: 160 MG, QD
     Route: 048
     Dates: start: 20170703, end: 201709

REACTIONS (8)
  - Weight decreased [Unknown]
  - Muscle spasms [Recovered/Resolved]
  - Fatigue [Not Recovered/Not Resolved]
  - Hypersomnia [None]
  - Gastrointestinal stromal tumour [None]
  - Dehydration [None]
  - Product use in unapproved indication [None]
  - Blood pressure increased [Recovering/Resolving]

NARRATIVE: CASE EVENT DATE: 2017
